FAERS Safety Report 11898459 (Version 1)
Quarter: 2016Q1

REPORT INFORMATION
  Report Type: Spontaneous
  Country: DK (occurrence: DK)
  Receive Date: 20160108
  Receipt Date: 20160108
  Transmission Date: 20160526
  Serious: Yes (Disabling)
  Sender: FDA-Public Use
  Company Number: PHHY2015DK170567

PATIENT
  Sex: Male

DRUGS (3)
  1. LAMISIL [Concomitant]
     Active Substance: TERBINAFINE HYDROCHLORIDE
     Indication: ERYTHRASMA
     Route: 065
  2. DOXYCYCLINE. [Suspect]
     Active Substance: DOXYCYCLINE
     Indication: ERYTHRASMA
     Dosage: 100 MG
     Route: 048
     Dates: start: 20120411
  3. DOXYCYCLINE. [Suspect]
     Active Substance: DOXYCYCLINE
     Dosage: 100 MG
     Route: 065
     Dates: start: 20130422

REACTIONS (1)
  - Pigmentation disorder [Not Recovered/Not Resolved]
